FAERS Safety Report 5207868-X (Version None)
Quarter: 2007Q1

REPORT INFORMATION
  Report Type: 
  Country: None (occurrence: None)
  Receive Date: 20070112
  Receipt Date: 20070105
  Transmission Date: 20070707
  Serious: Yes (Hospitalization)
  Sender: FDA-Public Use
  Company Number: FR-PFIZER INC-2007002285

PATIENT
  Age: 80 Year
  Sex: Female

DRUGS (2)
  1. ALPRAZOLAM [Suspect]
     Indication: DYSTHYMIC DISORDER
     Route: 048
  2. MIANSERIN [Suspect]
     Indication: DYSTHYMIC DISORDER
     Route: 048

REACTIONS (1)
  - TOXIC SKIN ERUPTION [None]
